FAERS Safety Report 5695432-8 (Version None)
Quarter: 2008Q2

REPORT INFORMATION
  Report Type: 
  Country: None (occurrence: None)
  Receive Date: 20080403
  Receipt Date: 20080318
  Transmission Date: 20081010
  Serious: Yes (Hospitalization)
  Sender: FDA-Public Use
  Company Number: SPV1-2008-00380

PATIENT
  Age: 7 Year
  Sex: Male
  Weight: 25.9 kg

DRUGS (2)
  1. VYVANSE [Suspect]
     Indication: ATTENTION DEFICIT/HYPERACTIVITY DISORDER
     Dosage: 50 MG, 1X/DAY:QD,ORAL
     Route: 048
     Dates: start: 20080213, end: 20080216
  2. TENEX [Concomitant]

REACTIONS (4)
  - HALLUCINATION [None]
  - LOGORRHOEA [None]
  - PANIC REACTION [None]
  - PSYCHOMOTOR HYPERACTIVITY [None]
